FAERS Safety Report 5158785-5 (Version None)
Quarter: 2006Q4

REPORT INFORMATION
  Report Type: 
  Country: None (occurrence: None)
  Receive Date: 20061128
  Receipt Date: 20060810
  Transmission Date: 20070319
  Serious: Yes (Hospitalization, Other)
  Sender: FDA-Public Use
  Company Number: FR-ELI_LILLY_AND_COMPANY-FR200608002276

PATIENT
  Age: 65 Year
  Sex: Female
  Weight: 75 kg

DRUGS (21)
  1. FORTEO [Suspect]
     Indication: OSTEOPOROSIS
     Dosage: 20 UG, DAILY (1/D)
     Route: 058
     Dates: start: 20060630
  2. OXYGEN [Concomitant]
     Indication: RESPIRATORY FAILURE
     Dosage: 1.5 LITER, OTHER
     Route: 055
  3. SERETIDE [Concomitant]
     Indication: RESPIRATORY FAILURE
  4. COMBIVENT                               /GFR/ [Concomitant]
     Indication: RESPIRATORY FAILURE
  5. LASIX [Concomitant]
     Dosage: 40 MG, DAILY (1/D)
  6. DIAMOX                                  /CAN/ [Concomitant]
     Indication: RESPIRATORY FAILURE
     Dosage: 125 MG, DAILY (1/D)
     Route: 048
  7. LEVOTHYROXINE SODIUM [Concomitant]
     Indication: HYPOTHYROIDISM
     Dosage: 150 UG, DAILY (1/D)
  8. ALDACTONE                               /USA/ [Concomitant]
     Indication: HYPERTENSION
     Dosage: 75 MG, DAILY (1/D)
  9. MONO-TILDIEM                            /FRA/ [Concomitant]
     Indication: HYPERTENSION
     Dosage: 300 MG, DAILY (1/D)
  10. TAHOR [Concomitant]
     Indication: HYPERCHOLESTEROLAEMIA
     Dosage: 1 D/F, DAILY (1/D)
     Route: 048
  11. LANZOR [Concomitant]
     Indication: ULCER
     Dosage: 30 MG, DAILY (1/D)
  12. DEBRIDAT [Concomitant]
     Indication: DIVERTICULUM
  13. LIBRAX [Concomitant]
     Indication: DIVERTICULUM
  14. VISCERALGINE [Concomitant]
     Indication: DIVERTICULUM
  15. DAFLON [Concomitant]
     Indication: VENOUS INSUFFICIENCY
  16. TORENTAL [Concomitant]
     Indication: VENOUS INSUFFICIENCY
     Dosage: 400 MG, DAILY (1/D)
  17. EFFEXOR [Concomitant]
     Indication: DEPRESSION
     Dosage: 75 MG, DAILY (1/D)
  18. OROCAL VITAMIN D [Concomitant]
     Indication: OSTEOPOROSIS
  19. ZOLPIDEM TARTRATE [Concomitant]
     Dosage: 1 D/F, EACH EVENING
     Route: 048
  20. HYDROCORTISONE [Concomitant]
  21. CORTISONE ACETATE [Concomitant]
     Dates: start: 19980101

REACTIONS (1)
  - ACUTE RESPIRATORY FAILURE [None]
